FAERS Safety Report 11499481 (Version 4)
Quarter: 2022Q2

REPORT INFORMATION
  Report Type: Spontaneous
  Country: CA (occurrence: None)
  Receive Date: 20150914
  Receipt Date: 20220607
  Transmission Date: 20220721
  Serious: Yes (Other)
  Sender: FDA-Public Use
  Company Number: CA-ROCHE-1632758

PATIENT
  Age: 32 Year
  Sex: Female

DRUGS (29)
  1. DIAZEPAM [Suspect]
     Active Substance: DIAZEPAM
     Indication: Product used for unknown indication
     Route: 042
  2. DIAZEPAM [Suspect]
     Active Substance: DIAZEPAM
     Dosage: INTRAVENOUS BOLUS
     Route: 042
  3. DIAZEPAM [Suspect]
     Active Substance: DIAZEPAM
     Route: 042
  4. ISOFLURANE [Suspect]
     Active Substance: ISOFLURANE
     Indication: Product used for unknown indication
     Route: 040
  5. ISOFLURANE [Suspect]
     Active Substance: ISOFLURANE
     Route: 065
  6. LIDOCAINE [Suspect]
     Active Substance: LIDOCAINE
     Indication: Product used for unknown indication
     Route: 061
  7. LORAZEPAM [Suspect]
     Active Substance: LORAZEPAM
     Indication: Product used for unknown indication
     Route: 040
  8. LORAZEPAM [Suspect]
     Active Substance: LORAZEPAM
     Route: 042
  9. PARALDEHYDE [Suspect]
     Active Substance: PARALDEHYDE
     Indication: Product used for unknown indication
     Route: 065
  10. PARALDEHYDE [Suspect]
     Active Substance: PARALDEHYDE
     Route: 065
  11. PHENOBARBITAL [Suspect]
     Active Substance: PHENOBARBITAL
     Indication: Product used for unknown indication
     Route: 042
  12. PHENOBARBITAL [Suspect]
     Active Substance: PHENOBARBITAL
     Route: 042
  13. PHENOBARBITAL [Suspect]
     Active Substance: PHENOBARBITAL
     Route: 065
  14. PHENOBARBITAL [Suspect]
     Active Substance: PHENOBARBITAL
     Route: 065
  15. PHENOBARBITAL [Suspect]
     Active Substance: PHENOBARBITAL
     Route: 065
  16. PHENYTOIN SODIUM [Suspect]
     Active Substance: PHENYTOIN SODIUM
     Indication: Product used for unknown indication
     Route: 065
  17. PHENYTOIN SODIUM [Suspect]
     Active Substance: PHENYTOIN SODIUM
     Route: 065
  18. VALPROIC ACID [Suspect]
     Active Substance: VALPROIC ACID
     Indication: Product used for unknown indication
     Route: 065
  19. VALPROIC ACID [Suspect]
     Active Substance: VALPROIC ACID
     Route: 065
  20. VALPROIC ACID [Suspect]
     Active Substance: VALPROIC ACID
     Route: 065
  21. VALPROIC ACID [Suspect]
     Active Substance: VALPROIC ACID
     Route: 048
  22. VALPROIC ACID [Suspect]
     Active Substance: VALPROIC ACID
     Route: 065
  23. VALPROIC ACID [Suspect]
     Active Substance: VALPROIC ACID
     Route: 065
  24. VALPROIC ACID [Suspect]
     Active Substance: VALPROIC ACID
     Route: 048
  25. FORANE [Suspect]
     Active Substance: ISOFLURANE
     Indication: Product used for unknown indication
     Route: 065
  26. LORAZEPAM [Suspect]
     Active Substance: LORAZEPAM
     Indication: Product used for unknown indication
     Route: 042
  27. PHENYTOIN [Suspect]
     Active Substance: PHENYTOIN
     Indication: Product used for unknown indication
     Route: 065
  28. LORAZEPAM [Suspect]
     Active Substance: LORAZEPAM
     Indication: Product used for unknown indication
     Route: 040
  29. DOPAMINE HYDROCHLORIDE [Concomitant]
     Active Substance: DOPAMINE HYDROCHLORIDE
     Indication: Product used for unknown indication
     Route: 065

REACTIONS (3)
  - Drug ineffective [Unknown]
  - Hypotension [Not Recovered/Not Resolved]
  - Status epilepticus [Not Recovered/Not Resolved]
